FAERS Safety Report 23986629 (Version 1)
Quarter: 2024Q2

REPORT INFORMATION
  Report Type: Spontaneous
  Country: US (occurrence: None)
  Receive Date: 20240617
  Receipt Date: 20240617
  Transmission Date: 20240716
  Serious: Yes (Hospitalization)
  Sender: FDA-Public Use
  Company Number: None

PATIENT
  Age: 73 Year
  Sex: Female
  Weight: 73 kg

DRUGS (1)
  1. LENVIMA [Suspect]
     Active Substance: LENVATINIB
     Indication: Hepatocellular carcinoma
     Dosage: 12 MG DAILY ORAL ?
     Route: 048
     Dates: start: 20240525

REACTIONS (2)
  - Hypertensive urgency [None]
  - Aortic stenosis [None]

NARRATIVE: CASE EVENT DATE: 20240603
